FAERS Safety Report 7953233-1 (Version None)
Quarter: 2011Q4

REPORT INFORMATION
  Report Type: 
  Country: None (occurrence: None)
  Receive Date: 20111201
  Receipt Date: 20111124
  Transmission Date: 20120403
  Serious: Yes (Disabling)
  Sender: FDA-Public Use
  Company Number: DE-MERCK-1110DEU00017

PATIENT
  Age: 59 Year
  Sex: Female
  Weight: 57 kg

DRUGS (2)
  1. ZOCOR [Suspect]
     Route: 048
     Dates: start: 20100301, end: 20110601
  2. BISOPROLOL FUMARATE [Concomitant]
     Route: 065
     Dates: start: 20100301

REACTIONS (8)
  - GLOSSODYNIA [None]
  - MYALGIA [None]
  - WRONG TECHNIQUE IN DRUG USAGE PROCESS [None]
  - PARAESTHESIA [None]
  - THROAT IRRITATION [None]
  - SKIN TIGHTNESS [None]
  - DRY MOUTH [None]
  - FEELING ABNORMAL [None]
